FAERS Safety Report 14803661 (Version 1)
Quarter: 2018Q2

REPORT INFORMATION
  Report Type: Spontaneous
  Country: US (occurrence: US)
  Receive Date: 20180425
  Receipt Date: 20180425
  Transmission Date: 20180711
  Serious: No
  Sender: FDA-Public Use
  Company Number: US-ASTRAZENECA-2018SE38820

PATIENT
  Sex: Male

DRUGS (1)
  1. SYMBICORT [Suspect]
     Active Substance: BUDESONIDE\FORMOTEROL FUMARATE DIHYDRATE
     Indication: PNEUMONITIS
     Dosage: UNKNOWN UNKNOWN
     Route: 055

REACTIONS (5)
  - Product use in unapproved indication [Unknown]
  - Drug dose omission [Unknown]
  - Intentional product misuse [Unknown]
  - Stress [Unknown]
  - Off label use [Unknown]
